FAERS Safety Report 4326158-0 (Version None)
Quarter: 2004Q1

REPORT INFORMATION
  Report Type: 
  Country: None (occurrence: None)
  Receive Date: 20040324
  Receipt Date: 20020807
  Transmission Date: 20041129
  Serious: Yes (Other)
  Sender: FDA-Public Use
  Company Number: 2002IC000256

PATIENT
  Age: 61 Year
  Sex: Female
  Weight: 63 kg

DRUGS (4)
  1. FLUOROURACIL [Suspect]
     Dosage: 739.5 MG; D1-5; INTRAVENOUS
     Route: 042
     Dates: start: 19980322, end: 19990419
  2. FLUOROURACIL [Suspect]
     Dosage: 517.65 MG; D1-5; INTRAVENOUS
     Route: 042
  3. LEUCOVORIN (FOLINIC ACID) [Suspect]
     Dosage: 34.8 MG; D1-5; INTRAVENOUS
     Route: 042
     Dates: start: 19990327, end: 19990820
  4. FILGRASTIM [Concomitant]

REACTIONS (2)
  - GRANULOCYTOPENIA [None]
  - MUCOSAL INFLAMMATION [None]
